FAERS Safety Report 5837015-2 (Version None)
Quarter: 2008Q3

REPORT INFORMATION
  Report Type: 
  Country: None (occurrence: None)
  Receive Date: 20080807
  Receipt Date: 20080730
  Transmission Date: 20090109
  Serious: Yes (Hospitalization, Other)
  Sender: FDA-Public Use
  Company Number: DE-ROCHE-554545

PATIENT
  Sex: Female
  Weight: 56 kg

DRUGS (3)
  1. PEGASYS [Suspect]
     Route: 058
     Dates: start: 20080114, end: 20080220
  2. RIBAVIRIN [Suspect]
     Route: 048
     Dates: start: 20080114, end: 20080220
  3. VX-950 [Suspect]
     Dosage: PERMANENTLY DISCONTINUED
     Route: 048
     Dates: start: 20080114, end: 20080220

REACTIONS (2)
  - PNEUMOTHORAX [None]
  - RASH [None]
